FAERS Safety Report 18154703 (Version 3)
Quarter: 2020Q3

REPORT INFORMATION
  Report Type: Spontaneous
  Country: PT (occurrence: PT)
  Receive Date: 20200817
  Receipt Date: 20200930
  Transmission Date: 20201103
  Serious: Yes (Other)
  Sender: FDA-Public Use
  Company Number: PT-UCBSA-2020030808

PATIENT
  Age: 59 Year
  Sex: Female

DRUGS (7)
  1. SINEMET [Suspect]
     Active Substance: CARBIDOPA\LEVODOPA
     Indication: ON AND OFF PHENOMENON
     Dosage: UNK
  2. STALEVO [Suspect]
     Active Substance: CARBIDOPA\ENTACAPONE\LEVODOPA
     Indication: ON AND OFF PHENOMENON
     Dosage: UNKNOWN
  3. ONGENTYS [Suspect]
     Active Substance: OPICAPONE
     Indication: ON AND OFF PHENOMENON
     Dosage: UNKNOWN
  4. XADAGO [Suspect]
     Active Substance: SAFINAMIDE MESYLATE
     Indication: ON AND OFF PHENOMENON
     Dosage: UNK
  5. AMANTADINE. [Suspect]
     Active Substance: AMANTADINE HYDROCHLORIDE
     Indication: ON AND OFF PHENOMENON
     Dosage: UNKNOWN
  6. NEUPRO [Suspect]
     Active Substance: ROTIGOTINE
     Indication: ON AND OFF PHENOMENON
     Dosage: UNKNOWN
  7. NEUPRO [Suspect]
     Active Substance: ROTIGOTINE
     Indication: OFF LABEL USE

REACTIONS (17)
  - Anxiety [Unknown]
  - Depression [Unknown]
  - Sleep disorder [Unknown]
  - Fatigue [Unknown]
  - Bradykinesia [Unknown]
  - Freezing phenomenon [Unknown]
  - Dysphonia [Unknown]
  - Constipation [Unknown]
  - Muscle rigidity [Unknown]
  - Dystonia [Unknown]
  - Off label use [Unknown]
  - Balance disorder [Unknown]
  - Anosmia [Unknown]
  - Reduced facial expression [Unknown]
  - Therapeutic response shortened [Unknown]
  - Gait disturbance [Unknown]
  - Tremor [Unknown]
